FAERS Safety Report 7241293-5 (Version None)
Quarter: 2011Q1

REPORT INFORMATION
  Report Type: 
  Country: None (occurrence: None)
  Receive Date: 20110124
  Receipt Date: 20110118
  Transmission Date: 20110831
  Serious: Yes (Hospitalization)
  Sender: FDA-Public Use
  Company Number: B0694137A

PATIENT
  Sex: Male

DRUGS (3)
  1. ADVIL [Suspect]
     Indication: PRODUCT USED FOR UNKNOWN INDICATION
     Dosage: 1200MG PER DAY
     Route: 048
     Dates: start: 20100401, end: 20100406
  2. CLAMOXYL [Suspect]
     Indication: ORCHITIS
     Dosage: 750MG THREE TIMES PER DAY
     Route: 048
     Dates: start: 20100319, end: 20100331
  3. NIFLURIL [Suspect]
     Indication: ORCHITIS
     Dosage: 400MG SEE DOSAGE TEXT
     Route: 065
     Dates: start: 20100319, end: 20100331

REACTIONS (5)
  - VOMITING [None]
  - ABDOMINAL PAIN LOWER [None]
  - TUBULOINTERSTITIAL NEPHRITIS [None]
  - HYPERPROTEINAEMIA [None]
  - GENERAL PHYSICAL HEALTH DETERIORATION [None]
